FAERS Safety Report 9454752 (Version 2)
Quarter: 2014Q1

REPORT INFORMATION
  Report Type: Spontaneous
  Country: US (occurrence: US)
  Receive Date: 20130812
  Receipt Date: 20140307
  Transmission Date: 20141002
  Serious: Yes (Hospitalization)
  Sender: FDA-Public Use
  Company Number: US-B.I. PHARMACEUTICALS,INC./RIDGEFIELD-2013-BI-23875BP

PATIENT
  Sex: Female
  Weight: 72.57 kg

DRUGS (11)
  1. PRADAXA [Suspect]
     Indication: ATRIAL FIBRILLATION
     Dosage: 300 MG
     Route: 065
     Dates: start: 20120302, end: 20120827
  2. PRADAXA [Suspect]
     Dosage: 300 MG
     Route: 065
     Dates: start: 20110616, end: 20111213
  3. AMBIEN [Concomitant]
     Route: 048
  4. DILTIAZEM [Concomitant]
     Dosage: 10 MG
     Route: 048
  5. METFORMIN [Concomitant]
     Dosage: 500 MG
     Route: 048
  6. METOPROLOL SUCCINATE [Concomitant]
     Dosage: 50 MG
     Route: 048
  7. DIGOXIN [Concomitant]
     Dosage: 125 MCG
     Route: 048
  8. METAMUCIL [Concomitant]
     Route: 048
  9. IRON [Concomitant]
     Dosage: 45 MG
     Route: 048
  10. VITAMIN C [Concomitant]
     Dosage: 500 MG
     Route: 048
  11. VITAMIN D [Concomitant]
     Dosage: 1000 U
     Route: 048

REACTIONS (2)
  - Cerebral haemorrhage [Unknown]
  - Abdominal discomfort [Unknown]
